FAERS Safety Report 14882891 (Version 1)
Quarter: 2018Q2

REPORT INFORMATION
  Report Type: Spontaneous
  Country: US (occurrence: US)
  Receive Date: 20180511
  Receipt Date: 20180511
  Transmission Date: 20180711
  Serious: No
  Sender: FDA-Public Use
  Company Number: US-ELI_LILLY_AND_COMPANY-US201805001200

PATIENT
  Sex: Female

DRUGS (2)
  1. CYMBALTA [Suspect]
     Active Substance: DULOXETINE HYDROCHLORIDE
     Indication: BACK PAIN
     Dosage: 20 MG, DAILY
     Route: 048
     Dates: start: 2017
  2. CYMBALTA [Suspect]
     Active Substance: DULOXETINE HYDROCHLORIDE
     Indication: PAIN

REACTIONS (17)
  - Angiopathy [Unknown]
  - Hyperhidrosis [Unknown]
  - Memory impairment [Unknown]
  - Anxiety [Unknown]
  - Musculoskeletal stiffness [Not Recovered/Not Resolved]
  - Pain [Unknown]
  - Tremor [Recovered/Resolved]
  - Muscle spasms [Unknown]
  - Muscle atrophy [Not Recovered/Not Resolved]
  - Blepharospasm [Unknown]
  - Disturbance in attention [Unknown]
  - Flushing [Unknown]
  - Wrong technique in product usage process [Unknown]
  - Feeling abnormal [Recovered/Resolved]
  - Muscle spasms [Not Recovered/Not Resolved]
  - Drug withdrawal syndrome [Unknown]
  - Abnormal dreams [Unknown]
